FAERS Safety Report 19739081 (Version 3)
Quarter: 2022Q3

REPORT INFORMATION
  Report Type: Other
  Country: JP (occurrence: JP)
  Receive Date: 20210824
  Receipt Date: 20220822
  Transmission Date: 20221027
  Serious: Yes (Hospitalization)
  Sender: FDA-Public Use
  Company Number: JP-CHUGAI-2021011761

PATIENT
  Age: 74 Year
  Sex: Female
  Weight: 46.3 kg

DRUGS (6)
  1. ATEZOLIZUMAB [Suspect]
     Active Substance: ATEZOLIZUMAB
     Indication: Small cell lung cancer extensive stage
     Dosage: 1200 MILLIGRAM, SINGLE
     Route: 041
     Dates: start: 20210413, end: 20210413
  2. ATEZOLIZUMAB [Suspect]
     Active Substance: ATEZOLIZUMAB
     Dosage: 1200 MILLIGRAM, ONCE/3WEEKS
     Route: 041
     Dates: start: 20210517, end: 20210719
  3. CARBOPLATIN [Concomitant]
     Active Substance: CARBOPLATIN
     Indication: Small cell lung cancer extensive stage
     Dosage: 320 MILLIGRAM, SINGLE
     Route: 041
     Dates: start: 20210413, end: 20210413
  4. CARBOPLATIN [Concomitant]
     Active Substance: CARBOPLATIN
     Dosage: 320 MILLIGRAM, SINGLE
     Route: 041
     Dates: start: 20210517, end: 20210517
  5. PACLITAXEL [Concomitant]
     Active Substance: PACLITAXEL
     Indication: Small cell lung cancer extensive stage
     Dosage: 110 MILLIGRAM
     Route: 041
     Dates: start: 20210413, end: 20210413
  6. PACLITAXEL [Concomitant]
     Active Substance: PACLITAXEL
     Dosage: 110 MILLIGRAM, SINGLE
     Route: 041
     Dates: start: 20210517, end: 20210517

REACTIONS (1)
  - Autoimmune hepatitis [Recovering/Resolving]

NARRATIVE: CASE EVENT DATE: 20210817
